FAERS Safety Report 9055039 (Version 3)
Quarter: 2013Q4

REPORT INFORMATION
  Report Type: Report from Study
  Country: IT (occurrence: IT)
  Receive Date: 20130206
  Receipt Date: 20131218
  Transmission Date: 20140711
  Serious: Yes (Life-Threatening, Other)
  Sender: FDA-Public Use
  Company Number: IT-ROCHE-1182084

PATIENT
  Age: 54 Year
  Sex: Male

DRUGS (2)
  1. VEMURAFENIB [Suspect]
     Indication: METASTATIC MALIGNANT MELANOMA
     Route: 048
     Dates: start: 20121224, end: 20130116
  2. FONDAPARINUX [Concomitant]
     Route: 058

REACTIONS (3)
  - Pneumonitis [Unknown]
  - Sepsis [Not Recovered/Not Resolved]
  - Disease progression [Unknown]
